FAERS Safety Report 6255851-8 (Version None)
Quarter: 2009Q3

REPORT INFORMATION
  Report Type: 
  Country: None (occurrence: None)
  Receive Date: 20090703
  Receipt Date: 20090624
  Transmission Date: 20100115
  Serious: Yes (Hospitalization)
  Sender: FDA-Public Use
  Company Number: US-PFIZER INC-2007064203

PATIENT
  Sex: Female
  Weight: 61.2 kg

DRUGS (11)
  1. SUTENT [Suspect]
     Indication: METASTATIC MALIGNANT MELANOMA
     Dosage: 37.5 MG, 1X/DAY
     Route: 048
     Dates: start: 20070328, end: 20070801
  2. DYAZIDE [Concomitant]
  3. COZAAR [Concomitant]
  4. WELLBUTRIN SR [Concomitant]
     Dosage: DAILY
  5. PAXIL [Concomitant]
     Dosage: DAILY
  6. PREMARIN [Concomitant]
     Dosage: DAILY
  7. VALIUM [Concomitant]
     Dosage: 5-10MG
  8. HYDROCODONE BITARTRATE [Concomitant]
  9. SYNTHROID [Concomitant]
     Dosage: DAILY
  10. PRILOSEC [Concomitant]
  11. MEGACE [Concomitant]
     Indication: DECREASED APPETITE

REACTIONS (1)
  - PYREXIA [None]
